FAERS Safety Report 13143548 (Version 2)
Quarter: 2017Q1

REPORT INFORMATION
  Report Type: Report from Study
  Country: KR (occurrence: KR)
  Receive Date: 20170124
  Receipt Date: 20170207
  Transmission Date: 20170428
  Serious: Yes (Hospitalization, Other)
  Sender: FDA-Public Use
  Company Number: KR-BRISTOL-MYERS SQUIBB COMPANY-BMS-2017-004179

PATIENT
  Age: 68 Year
  Sex: Male
  Weight: 81.5 kg

DRUGS (1)
  1. NIVOLUMAB [Suspect]
     Active Substance: NIVOLUMAB
     Indication: NON-SMALL CELL LUNG CANCER
     Dosage: 245 MG, QD
     Route: 042
     Dates: start: 20160706

REACTIONS (2)
  - Spinal fracture [Recovered/Resolved]
  - Pelvic fracture [Unknown]

NARRATIVE: CASE EVENT DATE: 20170115
